FAERS Safety Report 5245788-5 (Version None)
Quarter: 2007Q1

REPORT INFORMATION
  Report Type: 
  Country: None (occurrence: None)
  Receive Date: 20070223
  Receipt Date: 20070215
  Transmission Date: 20070707
  Serious: Yes (Hospitalization)
  Sender: FDA-Public Use
  Company Number: ZA-PFIZER INC-2007013537

PATIENT
  Sex: Male

DRUGS (1)
  1. CYCLOKAPRON (IV) [Suspect]
     Indication: POST PROCEDURAL HAEMORRHAGE

REACTIONS (1)
  - THROMBOSIS [None]
